FAERS Safety Report 4522409-8 (Version None)
Quarter: 2004Q4

REPORT INFORMATION
  Report Type: 
  Country: None (occurrence: None)
  Receive Date: 20041209
  Receipt Date: 20041206
  Transmission Date: 20050328
  Serious: Yes (Death, Hospitalization)
  Sender: FDA-Public Use
  Company Number: PHHO2004JP17318

PATIENT
  Age: 39 Year
  Sex: Female
  Weight: 45 kg

DRUGS (9)
  1. NEORAL [Suspect]
     Indication: LUNG TRANSPLANT
     Dosage: 350 MG/DAILY
     Route: 048
     Dates: start: 20000405, end: 20000414
  2. NEORAL [Suspect]
     Dosage: 250 MG/DAILY
     Route: 048
     Dates: start: 20000415, end: 20000518
  3. NEORAL [Suspect]
     Dosage: 220 MG/DAILY
     Route: 048
     Dates: start: 20000519, end: 20000612
  4. NEORAL [Suspect]
     Dosage: 250 MG/DAILY
     Route: 048
     Dates: start: 20000613, end: 20010328
  5. NEORAL [Suspect]
     Dosage: 200 MG/DAILY
     Route: 048
     Dates: start: 20020329, end: 20020610
  6. CELLCEPT [Suspect]
     Indication: LUNG TRANSPLANT
     Dosage: 2 MG/DAILY
     Route: 048
     Dates: start: 20000404, end: 20000428
  7. CELLCEPT [Suspect]
     Dosage: 1.5 MG/DAILY
     Route: 048
     Dates: start: 20000429, end: 20020610
  8. PREDONINE [Suspect]
     Indication: LUNG TRANSPLANT
     Dosage: 20 MG/DAILY
     Route: 048
     Dates: start: 20000406
  9. SANDIMMUNE [Concomitant]
     Indication: LUNG TRANSPLANT
     Dosage: 85MG DR
     Route: 042
     Dates: start: 20000329, end: 20000404

REACTIONS (4)
  - ANAEMIA [None]
  - DYSPNOEA [None]
  - LIVER TRANSPLANT REJECTION [None]
  - PULMONARY EMBOLISM [None]
